FAERS Safety Report 6942621-8 (Version None)
Quarter: 2010Q3

REPORT INFORMATION
  Report Type: 
  Country: None (occurrence: None)
  Receive Date: 20100826
  Receipt Date: 20100803
  Transmission Date: 20110219
  Serious: Yes (Other)
  Sender: FDA-Public Use
  Company Number: GB-BAXTER-2010BH021995

PATIENT
  Sex: Male
  Weight: 79 kg

DRUGS (3)
  1. METRONIDAZOLE [Suspect]
     Indication: EMPYEMA
     Route: 042
     Dates: start: 20100705, end: 20100709
  2. ERTAPENEM [Suspect]
     Indication: SEPSIS
     Route: 042
     Dates: start: 20100714, end: 20100717
  3. TAZOCIN [Suspect]
     Indication: EMPYEMA
     Route: 042
     Dates: start: 20100704, end: 20100712

REACTIONS (3)
  - EOSINOPHILIA [None]
  - RASH [None]
  - RENAL IMPAIRMENT [None]
